FAERS Safety Report 8775161 (Version 2)
Quarter: 2012Q4

REPORT INFORMATION
  Report Type: 
  Country: US (occurrence: US)
  Receive Date: 20120910
  Receipt Date: 20121005
  Transmission Date: 20130627
  Serious: Yes (Hospitalization)
  Sender: FDA-Public Use
  Company Number: US-ACTELION-A-NJ2012-69832

PATIENT
  Age: 83 Year
  Sex: Female

DRUGS (4)
  1. TRACLEER [Suspect]
     Indication: PULMONARY ARTERIAL HYPERTENSION
     Dosage: UNK
     Route: 048
  2. ADCIRCA [Concomitant]
  3. COUMADIN [Concomitant]
  4. FUROSEMIDE [Concomitant]

REACTIONS (6)
  - Thyroid disorder [Recovering/Resolving]
  - Thyroid function test abnormal [Recovering/Resolving]
  - Cardiac failure congestive [Recovering/Resolving]
  - Asthma [Unknown]
  - Cough [Recovering/Resolving]
  - Fatigue [Recovering/Resolving]
